FAERS Safety Report 8390758-1 (Version None)
Quarter: 2012Q2

REPORT INFORMATION
  Report Type: 
  Country: None (occurrence: None)
  Receive Date: 20120529
  Receipt Date: 20120515
  Transmission Date: 20120825
  Serious: Yes (Hospitalization)
  Sender: FDA-Public Use
  Company Number: NL-JNJFOC-20120112953

PATIENT
  Sex: Male
  Weight: 45 kg

DRUGS (6)
  1. CALCIUM [Concomitant]
  2. REMICADE [Suspect]
     Route: 042
     Dates: end: 20111207
  3. REMICADE [Suspect]
     Route: 042
     Dates: start: 20090216
  4. REMICADE [Suspect]
     Indication: CROHN'S DISEASE
     Route: 042
  5. ANTIBIOTICS [Concomitant]
     Indication: CROHN'S DISEASE
  6. VITAMIN D [Concomitant]

REACTIONS (1)
  - NO THERAPEUTIC RESPONSE [None]
